FAERS Safety Report 8398440-1 (Version None)
Quarter: 2012Q2

REPORT INFORMATION
  Report Type: 
  Country: None (occurrence: None)
  Receive Date: 20120531
  Receipt Date: 20120523
  Transmission Date: 20120825
  Serious: Yes (Hospitalization, Disabling)
  Sender: FDA-Public Use
  Company Number: US-BAYER-2012-032695

PATIENT
  Age: 46 Year
  Sex: Female
  Weight: 68.027 kg

DRUGS (5)
  1. METHYLPREDNISOLONE [Concomitant]
     Dosage: 4 MG, UNK
  2. CARVEDILOL [Concomitant]
     Dosage: 25 MG, BID
     Route: 048
  3. ENALAPRIL MALEATE [Concomitant]
     Dosage: 5 MG, UNK
     Route: 048
  4. OMEPRAZOLE [Concomitant]
     Dosage: 20 MG, UNK
     Route: 048
  5. DROSPIRENONE AND ETHINYL ESTRADIOL [Suspect]
     Indication: CONTRACEPTION
     Dosage: UNK
     Dates: start: 20110401, end: 20110601

REACTIONS (6)
  - EMOTIONAL DISTRESS [None]
  - PAIN [None]
  - EMBOLIC STROKE [None]
  - APHASIA [None]
  - HEMIPARESIS [None]
  - INJURY [None]
